FAERS Safety Report 8002326-1 (Version None)
Quarter: 2011Q4

REPORT INFORMATION
  Report Type: 
  Country: None (occurrence: None)
  Receive Date: 20111222
  Receipt Date: 20110421
  Transmission Date: 20120403
  Serious: No
  Sender: FDA-Public Use
  Company Number: US-GLAXOSMITHKLINE-A0923988A

PATIENT
  Age: 53 Year
  Sex: Male

DRUGS (3)
  1. LISINOPRIL [Concomitant]
  2. NICORETTE [Suspect]
     Indication: EX-TOBACCO USER
     Dates: start: 20110303
  3. ATENOLOL [Concomitant]

REACTIONS (3)
  - DIARRHOEA [None]
  - DRUG INTERACTION [None]
  - DRUG ADMINISTRATION ERROR [None]
